FAERS Safety Report 12266439 (Version 1)
Quarter: 2016Q2

REPORT INFORMATION
  Report Type: Spontaneous
  Country: US (occurrence: None)
  Receive Date: 20160413
  Receipt Date: 20160413
  Transmission Date: 20160815
  Serious: No
  Sender: FDA-Public Use
  Company Number: None

PATIENT
  Age: 44 Year
  Sex: Female
  Weight: 61.69 kg

DRUGS (10)
  1. PRIMROSE [Concomitant]
  2. FERRITIN [Concomitant]
     Active Substance: FERRITIN
  3. BIOTIN [Concomitant]
     Active Substance: BIOTIN
  4. PROBIOTIC [Concomitant]
     Active Substance: PROBIOTICS NOS
  5. METRONIDAZOLE. [Suspect]
     Active Substance: METRONIDAZOLE
     Indication: VAGINITIS GARDNERELLA
     Route: 048
     Dates: start: 20160410, end: 20160412
  6. EFFEXOR [Concomitant]
     Active Substance: VENLAFAXINE HYDROCHLORIDE
  7. TRAZODONE [Concomitant]
     Active Substance: TRAZODONE HYDROCHLORIDE
  8. VITAMIN D [Concomitant]
     Active Substance: CHOLECALCIFEROL
  9. MAGNESIUM [Concomitant]
     Active Substance: MAGNESIUM
  10. VITAMIN C [Concomitant]
     Active Substance: ASCORBIC ACID

REACTIONS (2)
  - Neuropathy peripheral [None]
  - Raynaud^s phenomenon [None]

NARRATIVE: CASE EVENT DATE: 20160410
